FAERS Safety Report 7248167-4 (Version None)
Quarter: 2011Q1

REPORT INFORMATION
  Report Type: 
  Country: None (occurrence: None)
  Receive Date: 20110127
  Receipt Date: 20101213
  Transmission Date: 20110831
  Serious: Yes (Hospitalization, Other)
  Sender: FDA-Public Use
  Company Number: US-BAYER-US-2007-009878

PATIENT
  Sex: Female
  Weight: 108.8 kg

DRUGS (5)
  1. CETIRIZINE HYDROCHLORIDE [Concomitant]
     Dosage: UNK, UNK
  2. YAZ [Suspect]
     Dosage: UNK
     Dates: start: 20030801
  3. TOPIRAMATE [Concomitant]
     Indication: MIGRAINE
     Dosage: UNK, UNK
  4. SIMVASTATIN [Concomitant]
     Dosage: UNK, UNK
  5. YASMIN [Suspect]
     Dosage: 1 DF, QD
     Route: 048
     Dates: start: 20030801, end: 20061210

REACTIONS (8)
  - PULMONARY INFARCTION [None]
  - MENTAL DISORDER [None]
  - PAIN [None]
  - ANXIETY [None]
  - PULMONARY EMBOLISM [None]
  - INJURY [None]
  - EMOTIONAL DISTRESS [None]
  - TACHYCARDIA [None]
